FAERS Safety Report 16850491 (Version 1)
Quarter: 2019Q3

REPORT INFORMATION
  Report Type: Report from Study
  Country: US (occurrence: US)
  Receive Date: 20190925
  Receipt Date: 20190925
  Transmission Date: 20191005
  Serious: Yes (Other)
  Sender: FDA-Public Use
  Company Number: US-JNJFOC-20190823310

PATIENT
  Age: 80 Year
  Sex: Male

DRUGS (16)
  1. TRAZODONE [Concomitant]
     Active Substance: TRAZODONE HYDROCHLORIDE
  2. NIFEDIPINE. [Concomitant]
     Active Substance: NIFEDIPINE
  3. RITALIN [Concomitant]
     Active Substance: METHYLPHENIDATE HYDROCHLORIDE
  4. VIIBRYD [Concomitant]
     Active Substance: VILAZODONE HYDROCHLORIDE
  5. LISINOPRIL. [Concomitant]
     Active Substance: LISINOPRIL
  6. ABILIFY [Concomitant]
     Active Substance: ARIPIPRAZOLE
  7. BUTALBITAL APAP CAFFEINE [Concomitant]
     Active Substance: ACETAMINOPHEN\BUTALBITAL\CAFFEINE
  8. TELMISARTAN. [Concomitant]
     Active Substance: TELMISARTAN
  9. TYLENOL [Concomitant]
     Active Substance: ACETAMINOPHEN
  10. IMBRUVICA [Suspect]
     Active Substance: IBRUTINIB
     Route: 048
     Dates: start: 20190711
  11. CYANOCOBALAMIN. [Concomitant]
     Active Substance: CYANOCOBALAMIN
  12. LORAZEPAM. [Concomitant]
     Active Substance: LORAZEPAM
  13. PRESERVISION AREDS [Concomitant]
     Active Substance: MINERALS\VITAMINS
  14. IMBRUVICA [Suspect]
     Active Substance: IBRUTINIB
     Indication: MANTLE CELL LYMPHOMA
     Dosage: 560 MG, QD
     Route: 048
     Dates: start: 201907, end: 201908
  15. IMBRUVICA [Suspect]
     Active Substance: IBRUTINIB
     Route: 048
  16. ZOFRAN [Concomitant]
     Active Substance: ONDANSETRON HYDROCHLORIDE

REACTIONS (5)
  - Corneal bleeding [Not Recovered/Not Resolved]
  - Macular degeneration [Unknown]
  - Pneumonia [Unknown]
  - Diarrhoea [Recovering/Resolving]
  - Contusion [Not Recovered/Not Resolved]

NARRATIVE: CASE EVENT DATE: 20190724
